FAERS Safety Report 9059959 (Version 1)
Quarter: 2013Q1

REPORT INFORMATION
  Report Type: Spontaneous
  Country: US (occurrence: US)
  Receive Date: 20130212
  Receipt Date: 20130212
  Transmission Date: 20140127
  Serious: Yes (Hospitalization)
  Sender: FDA-Public Use
  Company Number: US-BAYER-2013-015840

PATIENT
  Age: 31 Year
  Sex: Female
  Weight: 53 kg

DRUGS (7)
  1. OCELLA [Suspect]
  2. YASMIN [Suspect]
  3. CEFATRIZINE [Concomitant]
     Indication: MULTIPLE ALLERGIES
     Dosage: 10 MG, QD
     Route: 048
     Dates: start: 201005
  4. PATADAY [Concomitant]
     Indication: MULTIPLE ALLERGIES
     Dosage: 1 GTT EACH EYE 2 X A DAY
     Route: 047
     Dates: start: 201005
  5. MOMETASONE [Concomitant]
     Indication: MULTIPLE ALLERGIES
     Dosage: 50 MCG.ACT NA SUSP
     Route: 045
     Dates: start: 201005
  6. MULTIVITAMIN [Concomitant]
     Dosage: UNK
     Route: 048
     Dates: start: 201005
  7. XANAX [Concomitant]
     Indication: ANXIETY
     Dosage: 025 MG HALF TAB, PRN
     Route: 048
     Dates: start: 201005

REACTIONS (1)
  - Cerebrovascular accident [None]
